FAERS Safety Report 25506556 (Version 1)
Quarter: 2025Q3

REPORT INFORMATION
  Report Type: Spontaneous
  Country: PR (occurrence: PR)
  Receive Date: 20250702
  Receipt Date: 20250702
  Transmission Date: 20251021
  Serious: No
  Sender: GENMAB
  Company Number: PR-GENMAB-2025-01644

PATIENT

DRUGS (2)
  1. EPKINLY [Suspect]
     Active Substance: EPCORITAMAB-BYSP
     Indication: Diffuse large B-cell lymphoma
     Route: 065
  2. GEMCITABINE HYDROCHLORIDE\OXALIPLATIN\RITUXIMAB [Concomitant]
     Active Substance: GEMCITABINE HYDROCHLORIDE\OXALIPLATIN\RITUXIMAB
     Route: 065

REACTIONS (2)
  - Chills [Recovering/Resolving]
  - Off label use [Unknown]
